FAERS Safety Report 10446711 (Version 1)
Quarter: 2014Q3

REPORT INFORMATION
  Report Type: Spontaneous
  Country: US (occurrence: None)
  Receive Date: 20140909
  Receipt Date: 20140909
  Transmission Date: 20150326
  Serious: Yes (Death)
  Sender: FDA-Public Use
  Company Number: 2014AP004470

PATIENT
  Age: 35 Year
  Sex: Female

DRUGS (1)
  1. CITALOPRAM [Suspect]
     Active Substance: CITALOPRAM HYDROBROMIDE
     Indication: INTENTIONAL OVERDOSE

REACTIONS (8)
  - Cardiac arrest [None]
  - Torsade de pointes [None]
  - Serotonin syndrome [None]
  - Convulsion [None]
  - Intentional overdose [None]
  - Cough [None]
  - Pyrexia [None]
  - Retching [None]
